FAERS Safety Report 6565987-X (Version None)
Quarter: 2010Q1

REPORT INFORMATION
  Report Type: 
  Country: None (occurrence: None)
  Receive Date: 20100201
  Receipt Date: 20100122
  Transmission Date: 20100710
  Serious: Yes (Hospitalization)
  Sender: FDA-Public Use
  Company Number: JP-ALLERGAN-1000896US

PATIENT
  Age: 88 Year
  Sex: Female

DRUGS (7)
  1. ALESION TABLET [Suspect]
     Indication: PEMPHIGOID
     Dosage: 20 MG, QD
     Route: 048
     Dates: start: 20091125, end: 20100105
  2. VIBRAMYCIN [Suspect]
     Indication: PEMPHIGOID
     Dosage: 100 MG, QD
     Route: 048
     Dates: start: 20091125, end: 20100105
  3. NICOTINAMIDE [Suspect]
     Indication: PEMPHIGOID
     Dosage: 3 G, QD
     Route: 048
     Dates: start: 20091125, end: 20100105
  4. PERDIPINE [Concomitant]
     Indication: HYPERTENSION
     Dosage: UNK
     Route: 048
  5. MICARDIS [Concomitant]
     Indication: HYPERTENSION
     Dosage: 40 MG, QD
     Route: 048
     Dates: start: 20041101
  6. SENNOSIDE A+B CALCIUM [Concomitant]
     Indication: CONSTIPATION
     Dosage: 24 MG, QD
     Route: 048
     Dates: start: 20041101
  7. MAGNESIUM [Concomitant]
     Indication: CONSTIPATION
     Dosage: 1 G, QD
     Route: 048
     Dates: start: 20041101

REACTIONS (1)
  - INTERSTITIAL LUNG DISEASE [None]
